FAERS Safety Report 8114829-X (Version None)
Quarter: 2012Q1

REPORT INFORMATION
  Report Type: 
  Country: None (occurrence: None)
  Receive Date: 20120206
  Receipt Date: 20120202
  Transmission Date: 20120608
  Serious: Yes (Hospitalization, Other)
  Sender: FDA-Public Use
  Company Number: PHHY2012TW007338

PATIENT
  Sex: Female
  Weight: 41 kg

DRUGS (3)
  1. AZITHROMYCIN [Concomitant]
     Dosage: UNK UKN, UNK
  2. TASIGNA [Suspect]
     Indication: CHRONIC MYELOID LEUKAEMIA
     Dosage: 800 MG, DAILY
     Route: 048
     Dates: start: 20110302, end: 20120115
  3. AUGMENTIN '125' [Concomitant]
     Dosage: UNK UKN, UNK

REACTIONS (14)
  - WHITE BLOOD CELL COUNT INCREASED [None]
  - BLOOD PRESSURE DIASTOLIC DECREASED [None]
  - CARDIOMEGALY [None]
  - OSTEOARTHRITIS [None]
  - BLOOD GLUCOSE INCREASED [None]
  - SPUTUM DISCOLOURED [None]
  - SEPSIS [None]
  - HEART RATE INCREASED [None]
  - DYSPNOEA [None]
  - PRODUCTIVE COUGH [None]
  - PYREXIA [None]
  - INTERSTITIAL LUNG DISEASE [None]
  - DISORIENTATION [None]
  - C-REACTIVE PROTEIN INCREASED [None]
